FAERS Safety Report 6568877-1 (Version None)
Quarter: 2010Q1

REPORT INFORMATION
  Report Type: 
  Country: None (occurrence: None)
  Receive Date: 20100201
  Receipt Date: 20100201
  Transmission Date: 20100710
  Serious: Yes (Life-Threatening, Hospitalization, Disabling, Other)
  Sender: FDA-Public Use
  Company Number: None

PATIENT
  Sex: Female
  Weight: 64.8644 kg

DRUGS (2)
  1. GABAPENTIN [Suspect]
     Indication: NEURALGIA
     Dosage: 300 MG 1 CAPSULE - BEDTIME
     Dates: start: 20090814
  2. GABAPENTIN [Suspect]
     Indication: PROCEDURAL PAIN
     Dosage: 300 MG 1 CAPSULE - BEDTIME
     Dates: start: 20090814

REACTIONS (3)
  - CARDIAC FAILURE CONGESTIVE [None]
  - DYSPNOEA [None]
  - HEART RATE INCREASED [None]
